FAERS Safety Report 5571707-8 (Version None)
Quarter: 2007Q4

REPORT INFORMATION
  Report Type: 
  Country: None (occurrence: None)
  Receive Date: 20071221
  Receipt Date: 20071218
  Transmission Date: 20080405
  Serious: Yes (Congenital Anomaly)
  Sender: FDA-Public Use
  Company Number: A0683110A

PATIENT
  Sex: Male

DRUGS (4)
  1. PAXIL [Suspect]
     Indication: ANXIETY
     Dates: start: 20020101
  2. PAROXETINE [Suspect]
     Indication: ANXIETY
     Dates: start: 20040101
  3. PRENATAL VITAMINS [Concomitant]
  4. INSULIN [Concomitant]

REACTIONS (5)
  - ANXIETY [None]
  - CARDIAC DISORDER [None]
  - DRUG EXPOSURE DURING PREGNANCY [None]
  - PAIN [None]
  - SUPRAVENTRICULAR TACHYCARDIA [None]
